FAERS Safety Report 21196397 (Version 1)
Quarter: 2022Q3

REPORT INFORMATION
  Report Type: Report from Study
  Country: US (occurrence: US)
  Receive Date: 20220810
  Receipt Date: 20220810
  Transmission Date: 20221027
  Serious: Yes (Other)
  Sender: FDA-Public Use
  Company Number: US-BRISTOL-MYERS SQUIBB COMPANY-2022-087058

PATIENT
  Age: 52 Year
  Sex: Male
  Weight: 56.699 kg

DRUGS (1)
  1. REVLIMID [Suspect]
     Active Substance: LENALIDOMIDE
     Indication: Diffuse large B-cell lymphoma
     Dosage: DAILY FOR 14 DAYS OUT OF 28 DAY CYCLE. (2 WEEKS ON, 2 WEEKS OFF)
     Route: 048

REACTIONS (3)
  - COVID-19 [Unknown]
  - Weight decreased [Unknown]
  - Intentional product use issue [Unknown]
